FAERS Safety Report 23515353 (Version 1)
Quarter: 2024Q1

REPORT INFORMATION
  Report Type: Spontaneous
  Country: US (occurrence: US)
  Receive Date: 20240213
  Receipt Date: 20240213
  Transmission Date: 20240409
  Serious: Yes (Hospitalization, Other)
  Sender: FDA-Public Use
  Company Number: US-DRL-USA-LIT/USA/24/0002066

PATIENT
  Age: 21 Year
  Sex: Male

DRUGS (6)
  1. TACROLIMUS [Suspect]
     Active Substance: TACROLIMUS
     Indication: Immunosuppression
  2. MYCOPHENOLIC ACID [Suspect]
     Active Substance: MYCOPHENOLIC ACID
     Indication: Immunosuppression
  3. FLUCONAZOLE [Suspect]
     Active Substance: FLUCONAZOLE
     Indication: Disseminated cryptococcosis
     Dosage: (12 MG/KG) DAILY
  4. FLUCONAZOLE [Suspect]
     Active Substance: FLUCONAZOLE
  5. PREDNISONE [Suspect]
     Active Substance: PREDNISONE
     Indication: Immunosuppression
  6. THYMOCYTE IMMUNE GLOBULIN NOS [Suspect]
     Active Substance: THYMOCYTE IMMUNE GLOBULIN NOS
     Indication: Immunosuppression
     Dosage: 6 MG/KG ADMINISTERED OVER 5 DAYS

REACTIONS (6)
  - Cryptococcosis [Recovered/Resolved]
  - Drug ineffective [Unknown]
  - Myocarditis infectious [Recovered/Resolved]
  - Infective myositis [Recovered/Resolved]
  - Gastrointestinal disorder [Unknown]
  - Drug interaction [Unknown]
